FAERS Safety Report 8186128-1 (Version None)
Quarter: 2012Q1

REPORT INFORMATION
  Report Type: 
  Country: None (occurrence: None)
  Receive Date: 20120301
  Receipt Date: 20120223
  Transmission Date: 20120608
  Serious: Yes (Hospitalization)
  Sender: FDA-Public Use
  Company Number: 2012MA002497

PATIENT
  Age: 53 Year
  Sex: Male

DRUGS (7)
  1. OMEPRAZOLE [Concomitant]
  2. ALBUTEROL [Concomitant]
  3. CODEINE SULFATE [Concomitant]
  4. AZATHIOPRINE [Concomitant]
  5. BECLOMETHASONE DIPROPIONATE [Concomitant]
  6. LOSARTAN POTASSIUM [Concomitant]
  7. PROPRANOLOL HYDROCHLORIDE [Suspect]
     Dosage: PO
     Route: 048
     Dates: start: 20111202, end: 20120208

REACTIONS (6)
  - VOMITING [None]
  - LIVER FUNCTION TEST ABNORMAL [None]
  - HEPATITIS [None]
  - NAUSEA [None]
  - JAUNDICE [None]
  - LIVER INJURY [None]
